FAERS Safety Report 17366339 (Version 1)
Quarter: 2020Q1

REPORT INFORMATION
  Report Type: Spontaneous
  Country: US (occurrence: US)
  Receive Date: 20200204
  Receipt Date: 20200204
  Transmission Date: 20200409
  Serious: No
  Sender: FDA-Public Use
  Company Number: US-SA-2020SA028990

PATIENT
  Sex: Female

DRUGS (5)
  1. ALLEGRA-D [Suspect]
     Active Substance: FEXOFENADINE\PSEUDOEPHEDRINE
     Indication: VERTIGO
  2. ALLEGRA-D [Suspect]
     Active Substance: FEXOFENADINE\PSEUDOEPHEDRINE
     Indication: EAR PAIN
     Dosage: UNK
     Route: 065
  3. ALLEGRA-D [Suspect]
     Active Substance: FEXOFENADINE\PSEUDOEPHEDRINE
     Indication: NAUSEA
  4. DUPIXENT [Suspect]
     Active Substance: DUPILUMAB
     Indication: ASTHMA
     Dosage: 300 MG, QOW
     Route: 058
     Dates: start: 20190404
  5. NUCALA [Suspect]
     Active Substance: MEPOLIZUMAB
     Route: 065

REACTIONS (4)
  - Erythema [Recovering/Resolving]
  - Product use in unapproved indication [Unknown]
  - Sensitive skin [Recovering/Resolving]
  - Injection site reaction [Recovering/Resolving]
